FAERS Safety Report 4951683-9 (Version None)
Quarter: 2006Q1

REPORT INFORMATION
  Report Type: 
  Country: None (occurrence: None)
  Receive Date: 20060322
  Receipt Date: 20060322
  Transmission Date: 20060701
  Serious: Yes (Hospitalization)
  Sender: FDA-Public Use
  Company Number: None

PATIENT
  Age: 64 Year
  Sex: Male
  Weight: 88 kg

DRUGS (2)
  1. OXYCODONE [Suspect]
     Indication: HIP ARTHROPLASTY
     Dosage: 5MG   Q4H  PRN   PO
     Route: 048
  2. OXYCODONE [Suspect]
     Indication: OSTEOARTHRITIS
     Dosage: 5MG   Q4H  PRN   PO
     Route: 048

REACTIONS (10)
  - ACCIDENTAL OVERDOSE [None]
  - AGGRESSION [None]
  - BLOOD GLUCOSE INCREASED [None]
  - CONDITION AGGRAVATED [None]
  - CONFUSIONAL STATE [None]
  - DEPRESSED LEVEL OF CONSCIOUSNESS [None]
  - DRUG SCREEN POSITIVE [None]
  - LOSS OF CONSCIOUSNESS [None]
  - PAIN [None]
  - VOMITING [None]
